FAERS Safety Report 6747441-5 (Version None)
Quarter: 2010Q2

REPORT INFORMATION
  Report Type: 
  Country: None (occurrence: None)
  Receive Date: 20100528
  Receipt Date: 20100521
  Transmission Date: 20101027
  Serious: Yes (Hospitalization)
  Sender: FDA-Public Use
  Company Number: IT-ABBOTT-06P-083-0321331-00

PATIENT
  Sex: Female
  Weight: 106 kg

DRUGS (7)
  1. HUMIRA [Suspect]
     Indication: RHEUMATOID ARTHRITIS
     Route: 058
     Dates: start: 20040824
  2. HUMIRA [Suspect]
     Dates: start: 20050701, end: 20051201
  3. HUMIRA [Suspect]
     Dates: start: 20060104
  4. NAPROSYN [Concomitant]
     Indication: RHEUMATOID ARTHRITIS
     Dates: start: 20050808
  5. OMEPRAZOLE [Concomitant]
     Indication: GASTROOESOPHAGEAL REFLUX DISEASE
     Dates: start: 20050501
  6. CLONIDINE HCL [Concomitant]
     Indication: HYPERTENSION
  7. NEOSTAN PLUS [Concomitant]
     Indication: HYPERTENSION
     Dates: start: 20010101, end: 20051212

REACTIONS (1)
  - HYPERTENSIVE CRISIS [None]
